FAERS Safety Report 17162487 (Version 1)
Quarter: 2019Q4

REPORT INFORMATION
  Report Type: Spontaneous
  Country: US (occurrence: US)
  Receive Date: 20191216
  Receipt Date: 20191216
  Transmission Date: 20200122
  Serious: Yes (Hospitalization)
  Sender: FDA-Public Use
  Company Number: None

PATIENT
  Age: 48 Year
  Sex: Male

DRUGS (11)
  1. TIVICAY [Suspect]
     Active Substance: DOLUTEGRAVIR SODIUM
     Indication: HIV INFECTION
     Route: 048
  2. GEMFIBROZIL. [Concomitant]
     Active Substance: GEMFIBROZIL
  3. GABAPENTIN. [Concomitant]
     Active Substance: GABAPENTIN
  4. FLUCONAZOLE. [Concomitant]
     Active Substance: FLUCONAZOLE
  5. TRUVADA [Suspect]
     Active Substance: EMTRICITABINE\TENOFOVIR DISOPROXIL FUMARATE
     Indication: HIV INFECTION
     Route: 048
  6. RIFABUTIN. [Concomitant]
     Active Substance: RIFABUTIN
  7. IBUPROFEN. [Concomitant]
     Active Substance: IBUPROFEN
  8. ATOVAQUONE. [Concomitant]
     Active Substance: ATOVAQUONE
  9. AZITHROMYCIN ANHYDROUS. [Concomitant]
     Active Substance: AZITHROMYCIN ANHYDROUS
  10. TIZANIDINE. [Concomitant]
     Active Substance: TIZANIDINE
  11. ETHAMBUTOL [Concomitant]
     Active Substance: ETHAMBUTOL HYDROCHLORIDE

REACTIONS (4)
  - Renal failure [None]
  - Bone pain [None]
  - Pancreatitis [None]
  - Coma [None]
